FAERS Safety Report 5164686-9 (Version None)
Quarter: 2006Q4

REPORT INFORMATION
  Report Type: 
  Country: None (occurrence: None)
  Receive Date: 20061205
  Receipt Date: 20061006
  Transmission Date: 20070319
  Serious: Yes (Death, Hospitalization, Other)
  Sender: FDA-Public Use
  Company Number: JP-ELI_LILLY_AND_COMPANY-JP200610002413

PATIENT
  Sex: Male

DRUGS (8)
  1. PARIET                                  /JPN/ [Concomitant]
  2. LAC B [Concomitant]
  3. MUCOSTA [Concomitant]
  4. PENTAZOCINE LACTATE [Concomitant]
  5. ALBUMIN TANNATE [Concomitant]
  6. GEMZAR [Suspect]
     Indication: PANCREATIC CARCINOMA
     Dosage: 1500 MG, OTHER
     Route: 042
     Dates: start: 20060609, end: 20060609
  7. GEMZAR [Suspect]
     Dosage: 1200 MG, OTHER
     Route: 042
     Dates: start: 20060616, end: 20060922
  8. MS CONTIN [Concomitant]

REACTIONS (4)
  - ASCITES [None]
  - HAEMATURIA [None]
  - MALIGNANT ASCITES [None]
  - PROTEINURIA [None]
